FAERS Safety Report 23760514 (Version 1)
Quarter: 2024Q2

REPORT INFORMATION
  Report Type: Spontaneous
  Country: US (occurrence: US)
  Receive Date: 20240419
  Receipt Date: 20240419
  Transmission Date: 20240715
  Serious: Yes (Death, Life-Threatening, Hospitalization, Other)
  Sender: FDA-Public Use
  Company Number: None

PATIENT
  Age: 60 Year
  Sex: Female

DRUGS (3)
  1. DOCETAXEL [Suspect]
     Active Substance: DOCETAXEL\DOCETAXEL ANHYDROUS
     Indication: Breast cancer metastatic
     Dosage: COMPLETED SECOND CYCLE OF DOCETAXEL
  2. PERTUZUMAB [Suspect]
     Active Substance: PERTUZUMAB
     Indication: Breast cancer metastatic
     Dosage: COMPLETED HER SECOND CYCLE OF PERTUZUMAB
  3. TRASTUZUMAB [Suspect]
     Active Substance: TRASTUZUMAB
     Indication: Breast cancer metastatic
     Dosage: COMPLETED HER SECOND CYCLE OF TRASTUZUMAB

REACTIONS (17)
  - Condition aggravated [Fatal]
  - Generalised oedema [Fatal]
  - Eye haemorrhage [Fatal]
  - Ear haemorrhage [Fatal]
  - Epistaxis [Fatal]
  - Mouth haemorrhage [Fatal]
  - Haemorrhage [Fatal]
  - Hypoalbuminaemia [Fatal]
  - Faecal vomiting [Fatal]
  - Multiple organ dysfunction syndrome [Fatal]
  - Ileus [Fatal]
  - Mucosal inflammation [Fatal]
  - Hypotension [Fatal]
  - Renal failure [Fatal]
  - Febrile neutropenia [Fatal]
  - Diarrhoea [Unknown]
  - Asthenia [Unknown]
